FAERS Safety Report 8615723-8 (Version None)
Quarter: 2012Q3

REPORT INFORMATION
  Report Type: 
  Country: None (occurrence: None)
  Receive Date: 20120823
  Receipt Date: 20120814
  Transmission Date: 20120928
  Serious: Yes (Hospitalization)
  Sender: FDA-Public Use
  Company Number: AU-009507513-1208AUS006675

PATIENT

DRUGS (1)
  1. VICTRELIS [Suspect]

REACTIONS (1)
  - STRESS [None]
